FAERS Safety Report 17746892 (Version 2)
Quarter: 2020Q2

REPORT INFORMATION
  Report Type: Spontaneous
  Country: IT (occurrence: IT)
  Receive Date: 20200505
  Receipt Date: 20200619
  Transmission Date: 20200714
  Serious: Yes (Death)
  Sender: FDA-Public Use
  Company Number: IT-TEVA-2020-IT-1227375

PATIENT
  Age: 86 Year
  Sex: Male
  Weight: 65 kg

DRUGS (15)
  1. GLUCOSIO [Concomitant]
     Active Substance: DEXTROSE
     Dates: end: 20200329
  2. CARDIOASPIRIN [Concomitant]
     Active Substance: ASPIRIN
     Dosage: 100 MG
     Dates: end: 20200314
  3. AMOXICILLINA ACIDO CLAVULANICO MYLAN GENERICS 875 MG + 125 MG COMPRESS [Suspect]
     Active Substance: AMOXICILLIN\CLAVULANIC ACID
     Indication: RENAL CYST EXCISION
     Dosage: 2 GRAM
     Dates: start: 20200312
  4. PRAVASELECT 20 MG COMPRESSE [Concomitant]
     Dosage: 20 MG
     Dates: end: 20200314
  5. FELODIPINE. [Concomitant]
     Active Substance: FELODIPINE
     Dosage: 10 MG
  6. SODIO BICARBONATO GALENICA SENESE [Concomitant]
     Dates: end: 20200329
  7. DELTACORTENE 25 MG COMPRESSE [Concomitant]
     Active Substance: PREDNISONE
     Dosage: 50 MG
     Dates: start: 20200313, end: 20200318
  8. DOXAZOSINA EG 2 MG COMPRESSE [Concomitant]
     Dosage: 2 MG
  9. URBASON SOLUBILE [Concomitant]
     Active Substance: METHYLPREDNISOLONE SODIUM SUCCINATE
     Dosage: 40 MG
     Dates: start: 20200328, end: 20200328
  10. FUROSEMIDE. [Concomitant]
     Active Substance: FUROSEMIDE
     Dosage: 12.5 MG
  11. DELTACORTENE 25 MG COMPRESSE [Concomitant]
     Active Substance: PREDNISONE
     Dosage: 25 MG
     Dates: start: 20200318, end: 20200328
  12. SODIO CLORURO [Concomitant]
     Active Substance: SODIUM CHLORIDE
     Dates: start: 20200328, end: 20200329
  13. TACHIPIRINA [Suspect]
     Active Substance: ACETAMINOPHEN
     Dosage: 3 GRAM
     Dates: start: 20200310
  14. TRIMETON [Concomitant]
     Active Substance: CHLORPHENIRAMINE MALEATE
     Dosage: 10 MG
     Dates: start: 20200328, end: 20200328
  15. FLEBOCORTID RICHTER [Concomitant]
     Dosage: 1 GRAM
     Dates: start: 20200328, end: 20200328

REACTIONS (6)
  - Dyspnoea [Fatal]
  - Pyrexia [Fatal]
  - Mouth injury [Fatal]
  - Rash [Fatal]
  - Toxic epidermal necrolysis [Fatal]
  - Hypersensitivity [Fatal]

NARRATIVE: CASE EVENT DATE: 20200328
